FAERS Safety Report 17355213 (Version 2)
Quarter: 2023Q4

REPORT INFORMATION
  Report Type: Report from Study
  Country: IT (occurrence: IT)
  Receive Date: 20200131
  Receipt Date: 20231027
  Transmission Date: 20240110
  Serious: Yes (Other)
  Sender: FDA-Public Use
  Company Number: None

PATIENT

DRUGS (1)
  1. GRAZAX [Suspect]
     Active Substance: PHLEUM PRATENSE POLLEN
     Indication: Food allergy
     Dosage: 75000 SQ-T
     Route: 048
     Dates: start: 20191219, end: 20200115

REACTIONS (5)
  - Oral pain [Recovered/Resolved]
  - Cough [Recovered/Resolved]
  - Pharyngeal disorder [Recovered/Resolved]
  - Oropharyngeal pain [Recovered/Resolved]
  - Oral discomfort [Recovered/Resolved]

NARRATIVE: CASE EVENT DATE: 20200107
